FAERS Safety Report 14245869 (Version 1)
Quarter: 2017Q4

REPORT INFORMATION
  Report Type: Spontaneous
  Country: JP (occurrence: JP)
  Receive Date: 20171204
  Receipt Date: 20171204
  Transmission Date: 20180321
  Serious: Yes (Other)
  Sender: FDA-Public Use
  Company Number: JP-009507513-1711JPN003260J

PATIENT
  Age: 86 Year
  Sex: Male

DRUGS (3)
  1. CIPROFLOXACIN. [Suspect]
     Active Substance: CIPROFLOXACIN
     Indication: LIVER ABSCESS
     Dosage: UNK
     Route: 041
  2. TIENAM FOR INTRAVENOUS DRIP INFUSION 0.5G [Suspect]
     Active Substance: CILASTATIN SODIUM\IMIPENEM
     Indication: LIVER ABSCESS
     Dosage: 2000 MG, UNK
     Route: 013
  3. MEROPENEM. [Concomitant]
     Active Substance: MEROPENEM
     Indication: LIVER ABSCESS
     Dosage: UNK
     Route: 041

REACTIONS (2)
  - Drug-induced liver injury [Unknown]
  - Off label use [Unknown]
